FAERS Safety Report 4559635-8 (Version None)
Quarter: 2005Q1

REPORT INFORMATION
  Report Type: 
  Country: None (occurrence: None)
  Receive Date: 20050113
  Receipt Date: 20041008
  Transmission Date: 20050727
  Serious: Yes (Other)
  Sender: FDA-Public Use
  Company Number: 382990

PATIENT
  Sex: Male

DRUGS (1)
  1. FUZEON [Suspect]
     Indication: HIV INFECTION
     Dosage: 90 MG   2 PER DAY   SUBCUTANEOUS
     Route: 058

REACTIONS (1)
  - THROMBOCYTOPENIA [None]
